FAERS Safety Report 15491870 (Version 1)
Quarter: 2018Q4

REPORT INFORMATION
  Report Type: Spontaneous
  Country: FR (occurrence: FR)
  Receive Date: 20181012
  Receipt Date: 20181012
  Transmission Date: 20190205
  Serious: Yes (Death, Other)
  Sender: FDA-Public Use
  Company Number: FR-AUROBINDO-AUR-APL-2018-049013

PATIENT
  Age: 4 Day
  Sex: Male
  Weight: 2.84 kg

DRUGS (1)
  1. MEROPENEM ARROW [Suspect]
     Active Substance: MEROPENEM
     Indication: NEONATAL INFECTION
     Dosage: CF COMMENTAIRES
     Route: 041
     Dates: start: 20180818, end: 20180821

REACTIONS (1)
  - Multiple organ dysfunction syndrome [Fatal]

NARRATIVE: CASE EVENT DATE: 20180820
